FAERS Safety Report 11211223 (Version 1)
Quarter: 2015Q2

REPORT INFORMATION
  Report Type: Spontaneous
  Country: FR (occurrence: FR)
  Receive Date: 20150623
  Receipt Date: 20150623
  Transmission Date: 20150821
  Serious: Yes (Other)
  Sender: FDA-Public Use
  Company Number: FR-ROCHE-1596260

PATIENT
  Sex: Female

DRUGS (14)
  1. SABRIL [Suspect]
     Active Substance: VIGABATRIN
     Indication: EPILEPSY
     Route: 048
     Dates: end: 201411
  2. FOLINORAL [Suspect]
     Active Substance: LEUCOVORIN CALCIUM
     Indication: PRODUCT USED FOR UNKNOWN INDICATION
     Dosage: 7.1429 MG, 2 DF ON WEDNESDAY
     Route: 048
  3. SPASFON (FRANCE) [Suspect]
     Active Substance: PHLOROGLUCINOL
     Indication: PRODUCT USED FOR UNKNOWN INDICATION
     Dosage: IF NECESSARY
     Route: 048
  4. ZONEGRAN [Suspect]
     Active Substance: ZONISAMIDE
     Route: 048
     Dates: start: 201502
  5. ZONEGRAN [Suspect]
     Active Substance: ZONISAMIDE
     Indication: EPILEPSY
     Route: 048
     Dates: start: 201411
  6. MOTILIUM [Suspect]
     Active Substance: DOMPERIDONE
     Indication: PRODUCT USED FOR UNKNOWN INDICATION
     Route: 048
  7. ZONEGRAN [Suspect]
     Active Substance: ZONISAMIDE
     Route: 048
     Dates: start: 201412
  8. PHOSPHALUGEL [Suspect]
     Active Substance: ALUMINUM PHOSPHATE
     Indication: PRODUCT USED FOR UNKNOWN INDICATION
     Route: 048
  9. DOLIPRANE [Suspect]
     Active Substance: ACETAMINOPHEN
     Indication: PRODUCT USED FOR UNKNOWN INDICATION
     Dosage: 1 G IN THE MORNING AND IN THE EVENING
     Route: 048
     Dates: start: 20150310
  10. RIVOTRIL [Suspect]
     Active Substance: CLONAZEPAM
     Indication: EPILEPSY
     Dosage: BID: 3/4-0-3/4
     Route: 048
  11. TEGRETOL LP [Suspect]
     Active Substance: CARBAMAZEPINE
     Indication: EPILEPSY
     Dosage: 1-0-1
     Route: 048
  12. FORLAX [Suspect]
     Active Substance: POLYETHYLENE GLYCOL 4000
     Indication: PRODUCT USED FOR UNKNOWN INDICATION
     Route: 048
  13. SPAGULAX [Suspect]
     Active Substance: PLANTAGO OVATA SEED
     Indication: PRODUCT USED FOR UNKNOWN INDICATION
     Route: 048
  14. LANSOYL [Suspect]
     Active Substance: MINERAL OIL
     Indication: PRODUCT USED FOR UNKNOWN INDICATION
     Dosage: 1 DF EVERY 2 DAYS
     Route: 048

REACTIONS (3)
  - Disease progression [Not Recovered/Not Resolved]
  - Pancytopenia [Not Recovered/Not Resolved]
  - Macrocytosis [Not Recovered/Not Resolved]
